FAERS Safety Report 14957995 (Version 1)
Quarter: 2018Q2

REPORT INFORMATION
  Report Type: Spontaneous
  Country: US (occurrence: US)
  Receive Date: 20180531
  Receipt Date: 20180531
  Transmission Date: 20180711
  Serious: Yes (Other)
  Sender: FDA-Public Use
  Company Number: US-PFIZER INC-2018220932

PATIENT
  Age: 77 Year
  Sex: Female

DRUGS (2)
  1. ADVIL [Suspect]
     Active Substance: IBUPROFEN
     Dosage: 3 DF, DAILY (3 TABLETS A DAY FOR A COUPLE MORE DAYS)
  2. ADVIL [Suspect]
     Active Substance: IBUPROFEN
     Indication: ARTHRITIS
     Dosage: 200 MG 4 TABLETS 3 TIMES A DAY

REACTIONS (2)
  - Overdose [Unknown]
  - Renal failure [Unknown]

NARRATIVE: CASE EVENT DATE: 20180510
